FAERS Safety Report 9007288 (Version 1)
Quarter: 2013Q1

REPORT INFORMATION
  Report Type: Spontaneous
  Country: US (occurrence: US)
  Receive Date: 20130110
  Receipt Date: 20130110
  Transmission Date: 20140127
  Serious: Yes (Hospitalization)
  Sender: FDA-Public Use
  Company Number: US-MERCK-1301USA001591

PATIENT
  Age: 4 Year
  Sex: Male

DRUGS (12)
  1. SINGULAIR [Suspect]
     Indication: GROWTH RETARDATION
  2. SINGULAIR [Suspect]
     Indication: LUNG DISORDER
  3. LASIX (FUROSEMIDE) [Suspect]
  4. ASPEGIC [Suspect]
  5. AMOXICILLIN [Suspect]
  6. CIPROFLOXACIN [Suspect]
  7. MOTILIUM [Suspect]
  8. VENTOLIN (ALBUTEROL SULFATE) [Suspect]
  9. PULMICORT [Suspect]
  10. ATROVENT [Suspect]
  11. CAPTOPRIL [Suspect]
  12. FORLAX [Suspect]

REACTIONS (3)
  - Thrombocytopenia [Unknown]
  - Lung disorder [Unknown]
  - Growth retardation [Unknown]
